FAERS Safety Report 11350644 (Version 2)
Quarter: 2015Q4

REPORT INFORMATION
  Report Type: Spontaneous
  Country: FR (occurrence: FR)
  Receive Date: 20150807
  Receipt Date: 20151030
  Transmission Date: 20160304
  Serious: Yes (Hospitalization)
  Sender: FDA-Public Use
  Company Number: FR-ABBVIE-15P-056-1441185-00

PATIENT
  Age: 62 Year
  Sex: Male

DRUGS (5)
  1. CELECTOL [Suspect]
     Active Substance: CELIPROLOL HYDROCHLORIDE
     Indication: PRODUCT USED FOR UNKNOWN INDICATION
     Route: 048
  2. ODRIK [Suspect]
     Active Substance: TRANDOLAPRIL
     Indication: PRODUCT USED FOR UNKNOWN INDICATION
     Route: 048
  3. SERESTA [Suspect]
     Active Substance: OXAZEPAM
     Indication: PRODUCT USED FOR UNKNOWN INDICATION
     Dosage: UNIT DOSE:100 MG; 2 DF 3 TIMES DAILY IF NEEDED
     Route: 048
  4. AMLOR [Suspect]
     Active Substance: AMLODIPINE BESYLATE
     Indication: PRODUCT USED FOR UNKNOWN INDICATION
     Route: 048
  5. ANAFRANIL [Suspect]
     Active Substance: CLOMIPRAMINE HYDROCHLORIDE
     Indication: PRODUCT USED FOR UNKNOWN INDICATION
     Route: 048
     Dates: start: 20150626

REACTIONS (8)
  - Anticholinergic syndrome [Unknown]
  - Sinus tachycardia [Recovered/Resolved]
  - Electrocardiogram T wave amplitude decreased [Recovered/Resolved]
  - Hallucination [Recovered/Resolved]
  - Hypokalaemia [Recovering/Resolving]
  - Electrocardiogram QRS complex prolonged [Recovered/Resolved]
  - Generalised tonic-clonic seizure [Recovered/Resolved]
  - Electrocardiogram QT prolonged [Not Recovered/Not Resolved]

NARRATIVE: CASE EVENT DATE: 20150626
